FAERS Safety Report 6990343 (Version 3)
Quarter: 2012Q4

REPORT INFORMATION
  Report Type: 
  Country: CA (occurrence: CA)
  Receive Date: 20090508
  Receipt Date: 20121101
  Transmission Date: 20130627
  Serious: Yes (Death, Other)
  Sender: FDA-Public Use
  Company Number: PHHY2008CA13744

PATIENT
  Sex: Female

DRUGS (4)
  1. SANDOSTATIN LAR [Suspect]
     Indication: CARCINOID TUMOUR
     Dosage: 20 mg, UNK
     Route: 030
     Dates: start: 20041104
  2. SANDOSTATIN LAR [Suspect]
     Dosage: 30 mg, QMO
     Route: 030
     Dates: start: 20080709
  3. SANDOSTATIN LAR [Suspect]
     Dosage: 40 mg, UNK
     Route: 030
     Dates: end: 20090611
  4. LASIX [Concomitant]

REACTIONS (19)
  - Death [Fatal]
  - Cardiac valve disease [Unknown]
  - General physical health deterioration [Unknown]
  - Palpitations [Unknown]
  - Dyspnoea [Unknown]
  - Nasal discomfort [Unknown]
  - Pallor [Unknown]
  - Asthenia [Unknown]
  - Hypotension [Unknown]
  - Dizziness [Unknown]
  - Diarrhoea [Recovering/Resolving]
  - Weight decreased [Unknown]
  - Flushing [Unknown]
  - Decreased activity [Unknown]
  - Oedema peripheral [Unknown]
  - Influenza [Recovering/Resolving]
  - Cough [Unknown]
  - Decreased appetite [Unknown]
  - Dyspepsia [Unknown]
